FAERS Safety Report 4526328-2 (Version None)
Quarter: 2004Q4

REPORT INFORMATION
  Report Type: 
  Country: None (occurrence: None)
  Receive Date: 20041210
  Receipt Date: 20041130
  Transmission Date: 20050328
  Serious: Yes (Hospitalization)
  Sender: FDA-Public Use
  Company Number: 2004PK02045

PATIENT
  Age: 56 Year
  Sex: Female

DRUGS (15)
  1. ZESTRIL [Suspect]
     Dosage: 20 MG DAILY PO
     Route: 048
     Dates: end: 20041029
  2. SANDIMMUNE [Suspect]
     Indication: ASTHMA
     Dosage: 150 MG DAILY PO
     Route: 048
     Dates: start: 20030401, end: 20041029
  3. TOLVON [Suspect]
     Indication: DEPRESSION
     Dosage: 30 MG DAILY PO
     Route: 048
     Dates: start: 20041010
  4. SEROPRAM B [Suspect]
     Indication: DEPRESSION
     Dosage: 20 MG DAILY PO
     Route: 048
     Dates: start: 19990101
  5. SERETIDE DISKUS [Suspect]
     Indication: ASTHMA
     Dosage: 1000 UG DAILY IH
     Route: 055
  6. UNIFYL [Suspect]
     Dosage: 600 MG DAILY PO
     Route: 048
  7. SINGULAIR [Concomitant]
  8. PLAVIX [Concomitant]
  9. MEVALOTIN [Concomitant]
  10. PANTOZOL [Concomitant]
  11. PREDNISONE [Concomitant]
  12. FOSAMAX [Concomitant]
  13. CALCIMAGON-D3 [Concomitant]
  14. SPIRIVA [Concomitant]
  15. NORVASC [Concomitant]

REACTIONS (12)
  - CEREBROVASCULAR ACCIDENT [None]
  - DIPLOPIA [None]
  - DRUG INTERACTION [None]
  - ELECTROCARDIOGRAM QT PROLONGED [None]
  - EYELID PTOSIS [None]
  - HEMIANOPIA [None]
  - HYPERCHOLESTEROLAEMIA [None]
  - HYPERTENSION [None]
  - OVERDOSE [None]
  - RENAL IMPAIRMENT [None]
  - SEROTONIN SYNDROME [None]
  - SLEEP DISORDER [None]
